FAERS Safety Report 8473487-5 (Version None)
Quarter: 2012Q2

REPORT INFORMATION
  Report Type: 
  Country: None (occurrence: None)
  Receive Date: 20120622
  Receipt Date: 20120622
  Transmission Date: 20120825
  Serious: No
  Sender: FDA-Public Use
  Company Number: None

PATIENT
  Sex: Female

DRUGS (1)
  1. CLOPIDOGREL [Suspect]
     Indication: CORONARY ARTERY DISEASE
     Dosage: 75MG ONCE DAILY PO
     Route: 048
     Dates: start: 20120610, end: 20120620

REACTIONS (3)
  - HEADACHE [None]
  - PRURITUS [None]
  - ASTHENIA [None]
